FAERS Safety Report 7058326-1 (Version None)
Quarter: 2010Q4

REPORT INFORMATION
  Report Type: 
  Country: None (occurrence: None)
  Receive Date: 20101022
  Receipt Date: 20101011
  Transmission Date: 20110411
  Serious: No
  Sender: FDA-Public Use
  Company Number: US-PFIZER INC-2010124388

PATIENT
  Age: 38 Year
  Sex: Female

DRUGS (2)
  1. RELPAX [Suspect]
     Indication: MIGRAINE
     Dosage: 40 MG, ONE DAILY AS NEEDED
     Route: 048
  2. YAZ [Concomitant]
     Dosage: UNK
     Route: 048

REACTIONS (3)
  - OROPHARYNGEAL PAIN [None]
  - THROAT IRRITATION [None]
  - THROAT TIGHTNESS [None]
